FAERS Safety Report 18851787 (Version 1)
Quarter: 2021Q1

REPORT INFORMATION
  Report Type: Other
  Country: CN (occurrence: CN)
  Receive Date: 20210205
  Receipt Date: 20210205
  Transmission Date: 20210420
  Serious: Yes (Other)
  Sender: FDA-Public Use
  Company Number: CN-INVENTIA-000078

PATIENT
  Age: 35 Year
  Sex: Male

DRUGS (7)
  1. LITHIUM. [Concomitant]
     Active Substance: LITHIUM
     Indication: BIPOLAR I DISORDER
     Dosage: LITHIUM ER 0.9/D
  2. PALIPERIDONE PALMITATE [Suspect]
     Active Substance: PALIPERIDONE PALMITATE
     Indication: BIPOLAR I DISORDER
     Dosage: FIRST DOSE: 150 MG, ONCE MONTHLY INJECTION.
  3. PALIPERIDONE PALMITATE [Suspect]
     Active Substance: PALIPERIDONE PALMITATE
     Indication: BIPOLAR I DISORDER
     Dosage: THIRD DOSE: 100 MG, ONE?MONTHLY INJECTION.
  4. CLONAZEPAM. [Concomitant]
     Active Substance: CLONAZEPAM
     Indication: BIPOLAR I DISORDER
     Dosage: 2 MG/D
  5. PALIPERIDONE PALMITATE [Suspect]
     Active Substance: PALIPERIDONE PALMITATE
     Indication: BIPOLAR I DISORDER
     Dosage: SECOND DOSE: 100 MG, ONCE MONTHLY INJECTION.
  6. PALIPERIDONE PALMITATE [Suspect]
     Active Substance: PALIPERIDONE PALMITATE
     Indication: BIPOLAR I DISORDER
     Dosage: FINAL DOSE: 75 MG, ONE?MONTHLY INJECTION.
  7. LITHIUM. [Concomitant]
     Active Substance: LITHIUM
     Indication: BIPOLAR I DISORDER
     Dosage: LITHIUM ER 1.2/D

REACTIONS (6)
  - Insomnia [Unknown]
  - Bipolar I disorder [Unknown]
  - Sedation [Unknown]
  - Weight increased [Unknown]
  - Disease recurrence [Unknown]
  - Asthenia [Unknown]
